FAERS Safety Report 8452780-6 (Version None)
Quarter: 2012Q2

REPORT INFORMATION
  Report Type: 
  Country: None (occurrence: None)
  Receive Date: 20120620
  Receipt Date: 20120516
  Transmission Date: 20120825
  Serious: No
  Sender: FDA-Public Use
  Company Number: US-VERTEX PHARMACEUTICALS INC.-AE-2012-005978

PATIENT
  Sex: Female
  Weight: 77.18 kg

DRUGS (6)
  1. INCIVEK [Suspect]
     Indication: HEPATITIS C
     Route: 048
     Dates: start: 20120309
  2. PROPRANOLOL [Concomitant]
     Indication: HYPERTENSION
     Route: 048
  3. RIBAVIRIN [Concomitant]
     Indication: HEPATITIS C
     Route: 048
     Dates: start: 20120309
  4. PEGASYS [Concomitant]
     Indication: HEPATITIS C
     Route: 058
     Dates: start: 20120309
  5. METAMUCIL-2 [Concomitant]
     Indication: CONSTIPATION
     Route: 048
  6. STOOL SOFTENER [Concomitant]
     Indication: CONSTIPATION
     Route: 048

REACTIONS (11)
  - PAIN [None]
  - HAEMORRHOIDS [None]
  - PROCTALGIA [None]
  - NAUSEA [None]
  - PYREXIA [None]
  - ANORECTAL DISCOMFORT [None]
  - WEIGHT INCREASED [None]
  - HEADACHE [None]
  - CHILLS [None]
  - PRURITUS [None]
  - PAROSMIA [None]
